FAERS Safety Report 9556889 (Version 1)
Quarter: 2013Q3

REPORT INFORMATION
  Report Type: Spontaneous
  Country: US (occurrence: US)
  Receive Date: 20130926
  Receipt Date: 20130926
  Transmission Date: 20140515
  Serious: Yes (Other)
  Sender: FDA-Public Use
  Company Number: US-PFIZER INC-2013275057

PATIENT
  Age: 73 Year
  Sex: Female
  Weight: 88.4 kg

DRUGS (1)
  1. LEVOXYL [Suspect]
     Indication: HYPOTHYROIDISM
     Dosage: DAILY
     Route: 048

REACTIONS (5)
  - Back disorder [Unknown]
  - Amnesia [Unknown]
  - Memory impairment [Unknown]
  - Feeling abnormal [Unknown]
  - Thyroid disorder [Unknown]
